FAERS Safety Report 4902822-7 (Version None)
Quarter: 2006Q1

REPORT INFORMATION
  Report Type: 
  Country: None (occurrence: None)
  Receive Date: 20060113
  Receipt Date: 20050412
  Transmission Date: 20060701
  Serious: Yes (Other)
  Sender: FDA-Public Use
  Company Number: HQWYE026614APR05

PATIENT
  Age: 49 Year
  Sex: Female
  Weight: 56.75 kg

DRUGS (10)
  1. PREMPRO [Suspect]
     Indication: HORMONE REPLACEMENT THERAPY
     Dosage: ORAL
     Route: 048
  2. CLIMARA [Suspect]
  3. CYCRIN [Suspect]
  4. ESTRADERM [Suspect]
  5. MEDROXYPROGESTERONE [Suspect]
  6. PREMARIN [Suspect]
  7. PROVERA [Suspect]
  8. METOPROLOL (METOPROLOL) [Concomitant]
  9. TRIAMTERENE (TRIAMTERENE) [Concomitant]
  10. LEVOXYL [Concomitant]

REACTIONS (1)
  - BREAST CANCER [None]
